FAERS Safety Report 16770803 (Version 1)
Quarter: 2019Q3

REPORT INFORMATION
  Report Type: Spontaneous
  Country: US (occurrence: US)
  Receive Date: 20190904
  Receipt Date: 20190904
  Transmission Date: 20191005
  Serious: No
  Sender: FDA-Public Use
  Company Number: US-AMGEN-USASP2019140533

PATIENT
  Sex: Female

DRUGS (9)
  1. ENBREL [Suspect]
     Active Substance: ETANERCEPT
     Indication: OSTEOPOROSIS
     Dosage: 50 MILLIGRAM, QWK
     Route: 058
  2. MELOXICAM. [Concomitant]
     Active Substance: MELOXICAM
     Dosage: UNK
     Route: 065
  3. LOVASTATIN. [Concomitant]
     Active Substance: LOVASTATIN
     Dosage: UNK
     Route: 065
  4. TRAMADOL HCL [Concomitant]
     Active Substance: TRAMADOL HYDROCHLORIDE
     Dosage: 50 MILLIGRAM
     Route: 065
  5. FISH OIL [Concomitant]
     Active Substance: FISH OIL
     Dosage: UNK
  6. SIMVASTATIN. [Concomitant]
     Active Substance: SIMVASTATIN
     Dosage: UNK
     Route: 065
  7. CALCIUM CITRATE [Concomitant]
     Active Substance: CALCIUM CITRATE
     Dosage: UNK
     Route: 065
  8. FLUTICASONE PROPIONATE. [Concomitant]
     Active Substance: FLUTICASONE PROPIONATE
     Dosage: UNK
     Route: 065
  9. LORATADINE. [Concomitant]
     Active Substance: LORATADINE
     Dosage: UNK
     Route: 065

REACTIONS (2)
  - Off label use [Unknown]
  - Injection site urticaria [Unknown]
